FAERS Safety Report 4815560-6 (Version None)
Quarter: 2005Q4

REPORT INFORMATION
  Report Type: 
  Country: None (occurrence: None)
  Receive Date: 20051027
  Receipt Date: 20051024
  Transmission Date: 20060501
  Serious: Yes (Death, Life-Threatening, Hospitalization, Disabling)
  Sender: FDA-Public Use
  Company Number: HQWYE197024OCT05

PATIENT
  Age: 69 Year
  Sex: Male

DRUGS (3)
  1. CORDARONE [Suspect]
     Indication: ATRIAL FIBRILLATION
  2. HEPARIN [Concomitant]
  3. ASPIRIN [Concomitant]

REACTIONS (8)
  - ATRIAL FIBRILLATION [None]
  - COMA [None]
  - DRUG INEFFECTIVE [None]
  - HYPERTHYROIDISM [None]
  - NERVOUSNESS [None]
  - PYREXIA [None]
  - THYROTOXIC CRISIS [None]
  - TREMOR [None]
